FAERS Safety Report 23644711 (Version 4)
Quarter: 2024Q2

REPORT INFORMATION
  Report Type: Report from Study
  Country: US (occurrence: US)
  Receive Date: 20240318
  Receipt Date: 20240412
  Transmission Date: 20240715
  Serious: No
  Sender: FDA-Public Use
  Company Number: US-ABBVIE-5681240

PATIENT
  Age: 69 Year
  Sex: Female
  Weight: 99.336 kg

DRUGS (28)
  1. RINVOQ [Suspect]
     Active Substance: UPADACITINIB
     Indication: Crohn^s disease
     Dosage: FORM STRENGTH: 45 MILLIGRAM
     Route: 048
     Dates: start: 202311, end: 202402
  2. RINVOQ [Suspect]
     Active Substance: UPADACITINIB
     Indication: Crohn^s disease
     Dosage: FORM STRENGTH: 15 MILLIGRAM
     Route: 048
     Dates: start: 202402
  3. OMEGA-3 FATTY ACIDS [Concomitant]
     Active Substance: OMEGA-3 FATTY ACIDS
     Indication: Product used for unknown indication
     Dosage: TAKE 2 CAPSULES (2 G TOTAL) BY MOUTH IN THE MORNING AND 2 CAPSULES (2 G TOTAL) BEFORE BEDTIME. FO...
     Route: 048
  4. NIFEDIPINE [Concomitant]
     Active Substance: NIFEDIPINE
     Indication: Product used for unknown indication
     Dosage: TAKE 1 TABLET (60 MG TOTAL) BY MOUTH 1 (ONE) TIME EACH DAY BEFORE BREAKFAST.; CC; FORM STRENGTH: ...
     Route: 048
  5. SODIUM CHLORIDE [Concomitant]
     Active Substance: SODIUM CHLORIDE
     Indication: Cough
     Dosage: TAKE 4 ML BY NEBULIZATION 1 (ONE) TIME EACH DAY IF NEEDED FOR COUGH.; 3% VIAL  SOLUTION FOR NEBUL...
  6. VITAMIN D2 [Concomitant]
     Active Substance: ERGOCALCIFEROL
     Indication: Product used for unknown indication
     Dosage: FORM STRENGTH: 1.25MG ; FREQUENCY TEXT: SATURDAY ONLY
  7. ALBUTEROL SULFATE [Concomitant]
     Active Substance: ALBUTEROL SULFATE
     Indication: Product used for unknown indication
     Dosage: INHALE 2 PUFFS BY MOUTH EVERY 4 TO 6 HOURS AS NEEDED; INHALER HFA
  8. ATORVASTATIN [Concomitant]
     Active Substance: ATORVASTATIN
     Indication: Product used for unknown indication
     Dosage: FORM STRENGTH: 40 MG ; FREQUENCY TEXT: PM
     Route: 048
  9. SULFASALAZINE [Concomitant]
     Active Substance: SULFASALAZINE
     Indication: Product used for unknown indication
     Dosage: FORM STRENGTH: 500 MG
     Route: 048
  10. FLUOXETINE [Concomitant]
     Active Substance: FLUOXETINE HYDROCHLORIDE
     Indication: Product used for unknown indication
     Dosage: FORM STRENGTH: 20 MG
     Route: 048
  11. METFORMIN HYDROCHLORIDE [Concomitant]
     Active Substance: METFORMIN HYDROCHLORIDE
     Indication: Product used for unknown indication
     Dosage: FORM STRENGTH: 1 GRAM; FREQUENCY TEXT: AM/PM
     Route: 048
  12. ERGOCALCIFEROL [Concomitant]
     Active Substance: ERGOCALCIFEROL
     Indication: Product used for unknown indication
     Dosage: FORM STRENGTH: 1.25 MG
     Route: 048
  13. ALENDRONATE [Concomitant]
     Active Substance: ALENDRONATE SODIUM
     Indication: Product used for unknown indication
     Dosage: TAKE ONE TABLET BY MOUTH 30 MINUTES BEFORE BREAKFAST EVERY WEEK. FORM STRENGTH: 70 MG
     Route: 048
  14. TRELEGY ELLIPTA [Concomitant]
     Active Substance: FLUTICASONE FUROATE\UMECLIDINIUM BROMIDE\VILANTEROL TRIFENATATE
     Indication: Product used for unknown indication
     Dosage: 100/62.5/25 BLISTER; BLISTER WITH DEVICE; FREQUENCY TEXT: INHALE 1 PUFF BY MOUTH EVERY DAY
  15. URSODIOL [Concomitant]
     Active Substance: URSODIOL
     Indication: Product used for unknown indication
     Dosage: FORM STRENGTH: 500 MG ; FREQUENCY TEXT: AM/PM
     Route: 048
  16. LOSARTAN POTASSIUM [Concomitant]
     Active Substance: LOSARTAN POTASSIUM
     Indication: Product used for unknown indication
     Dosage: TAKE 1 TABLET (50 MG TOTAL) BY MOUTH IN THE MORNING AND 1 TABLET (50 MG TOTAL) IN THE EVENING.; F...
     Route: 048
  17. Nitroglycerin? [Concomitant]
     Indication: Product used for unknown indication
     Dosage: PLACE 1 TABLET AS NEEDED BY SUBLINGUAL ROUTE.; FORM STRENGTH: 0.4 MG
     Route: 060
  18. FUROSEMIDE [Concomitant]
     Active Substance: FUROSEMIDE
     Indication: Oedema peripheral
     Dosage: FORM STRENGTH: 20 MG
     Route: 048
  19. ALBUTEROL [Concomitant]
     Active Substance: ALBUTEROL
     Indication: Wheezing
     Dosage: 2.5MG/3ML SOL TAKE 3 ML (2.5 MG TOTAL) BY NEBULIZATION 4 (FOUR) TIMES A DAY IF NEEDED; SUL SOLUTI...
  20. MIRTAZAPINE [Concomitant]
     Active Substance: MIRTAZAPINE
     Indication: Product used for unknown indication
     Dosage: FORM STRENGTH: 45 MG; FREQUENCY TEXT: PM
     Route: 048
  21. GLIPIZIDE [Concomitant]
     Active Substance: GLIPIZIDE
     Indication: Product used for unknown indication
     Dosage: TAKE ONE TABLET BY MOUTH ONE TIME DAILY WITH BREAKFAST *DO NOT CRUSH, CHEW, OR SPLIT*; EXTENDED R...
     Route: 048
  22. XELJANZ [Concomitant]
     Active Substance: TOFACITINIB CITRATE
     Indication: Product used for unknown indication
  23. PREDNISONE [Concomitant]
     Active Substance: PREDNISONE
     Indication: Product used for unknown indication
     Dosage: FORM STRENGTH: 20 MG
     Route: 048
  24. FOLIC ACID [Concomitant]
     Active Substance: FOLIC ACID
     Indication: Product used for unknown indication
     Dosage: FORM STRENGTH: 1 MG
     Route: 048
  25. CYANOCOBALAMIN [Concomitant]
     Active Substance: CYANOCOBALAMIN
     Indication: Product used for unknown indication
     Dosage: FORM STRENGTH: 1000 MICROGRAM
  26. CYANOCOBALAMIN [Concomitant]
     Active Substance: CYANOCOBALAMIN
     Indication: Product used for unknown indication
     Route: 060
  27. CLONAZEPAM [Concomitant]
     Active Substance: CLONAZEPAM
     Indication: Anxiety
     Dosage: FORM STRENGTH: 0.5 MG
     Route: 048
  28. FAMOTIDINE [Concomitant]
     Active Substance: FAMOTIDINE
     Indication: Product used for unknown indication
     Dosage: FORM STRENGTH: 40 MG ; FREQUENCY TEXT: PM
     Route: 048

REACTIONS (1)
  - Malaise [Recovered/Resolved]

NARRATIVE: CASE EVENT DATE: 20240301
